FAERS Safety Report 4290366-8 (Version None)
Quarter: 2004Q1

REPORT INFORMATION
  Report Type: 
  Country: None (occurrence: None)
  Receive Date: 20040210
  Receipt Date: 20040127
  Transmission Date: 20041129
  Serious: Yes (Other)
  Sender: FDA-Public Use
  Company Number: PHBS2004FR01418

PATIENT
  Age: 79 Year
  Sex: Female

DRUGS (1)
  1. IMATINIB [Suspect]
     Route: 065

REACTIONS (6)
  - HAEMATOCRIT INCREASED [None]
  - HAEMOGLOBIN INCREASED [None]
  - PLATELET COUNT INCREASED [None]
  - POLYCYTHAEMIA VERA [None]
  - RED BLOOD CELL COUNT INCREASED [None]
  - SERUM FERRITIN DECREASED [None]
